FAERS Safety Report 7532257-2 (Version None)
Quarter: 2011Q2

REPORT INFORMATION
  Report Type: 
  Country: None (occurrence: None)
  Receive Date: 20110608
  Receipt Date: 20101018
  Transmission Date: 20111010
  Serious: No
  Sender: FDA-Public Use
  Company Number: US-TEVA-245189USA

PATIENT
  Age: 63 Year
  Sex: Female

DRUGS (1)
  1. ENJUVIA [Suspect]
     Dates: start: 20100501, end: 20100701

REACTIONS (6)
  - PAIN IN EXTREMITY [None]
  - FATIGUE [None]
  - FLATULENCE [None]
  - HYPERSENSITIVITY [None]
  - DEMYELINATING POLYNEUROPATHY [None]
  - LETHARGY [None]
